FAERS Safety Report 15048367 (Version 1)
Quarter: 2018Q2

REPORT INFORMATION
  Report Type: Spontaneous
  Country: PL (occurrence: PL)
  Receive Date: 20180622
  Receipt Date: 20180622
  Transmission Date: 20180711
  Serious: Yes (Other)
  Sender: FDA-Public Use
  Company Number: PL-HETERO CORPORATE-HET2018PL00556

PATIENT
  Age: 14 Month
  Sex: Female

DRUGS (2)
  1. LEVETIRACETAM. [Suspect]
     Active Substance: LEVETIRACETAM
     Indication: STRABISMUS
     Dosage: 30 MICROGRAM/KILOGRAM, QD
     Route: 065
  2. VALPROIC ACID. [Concomitant]
     Active Substance: VALPROIC ACID
     Indication: PRODUCT USED FOR UNKNOWN INDICATION
     Dosage: 30 MICROGRAM/KILOGRAM, Q.D.
     Route: 065

REACTIONS (4)
  - Condition aggravated [Recovering/Resolving]
  - Epilepsy [Recovering/Resolving]
  - Strabismus [Recovering/Resolving]
  - Tremor [Recovering/Resolving]
